FAERS Safety Report 18742471 (Version 2)
Quarter: 2021Q1

REPORT INFORMATION
  Report Type: Spontaneous
  Country: US (occurrence: US)
  Receive Date: 20210114
  Receipt Date: 20210203
  Transmission Date: 20210419
  Serious: Yes (Death, Hospitalization, Other)
  Sender: FDA-Public Use
  Company Number: US-INCYTE CORPORATION-2021IN000104

PATIENT

DRUGS (1)
  1. JAKAFI [Suspect]
     Active Substance: RUXOLITINIB
     Indication: ESSENTIAL THROMBOCYTHAEMIA
     Dosage: 5 MILLIGRAM, BID
     Route: 048
     Dates: start: 20201210, end: 20210108

REACTIONS (4)
  - Death [Fatal]
  - Lethargy [Unknown]
  - Renal disorder [Unknown]
  - Off label use [Unknown]

NARRATIVE: CASE EVENT DATE: 20201210
